FAERS Safety Report 5145765-9 (Version None)
Quarter: 2006Q4

REPORT INFORMATION
  Report Type: 
  Country: None (occurrence: None)
  Receive Date: 20061102
  Receipt Date: 20061020
  Transmission Date: 20070319
  Serious: Yes (Hospitalization, Other)
  Sender: FDA-Public Use
  Company Number: 2006129578

PATIENT
  Age: 71 Year
  Sex: Male

DRUGS (3)
  1. GABAPENTIN [Suspect]
     Indication: HERPES ZOSTER
  2. LYRICA [Concomitant]
  3. INSULIN [Concomitant]

REACTIONS (9)
  - BLINDNESS UNILATERAL [None]
  - BLOOD PRESSURE INCREASED [None]
  - CATARACT OPERATION [None]
  - CONSTIPATION [None]
  - DIABETIC COMPLICATION [None]
  - DIVERTICULITIS [None]
  - DRUG TOXICITY [None]
  - JOINT SWELLING [None]
  - OEDEMA PERIPHERAL [None]
